FAERS Safety Report 4294724-7 (Version None)
Quarter: 2004Q1

REPORT INFORMATION
  Report Type: 
  Country: None (occurrence: None)
  Receive Date: 20040213
  Receipt Date: 20040203
  Transmission Date: 20041129
  Serious: Yes (Death)
  Sender: FDA-Public Use
  Company Number: US-ROCHE-358150

PATIENT
  Sex: Male

DRUGS (1)
  1. FUZEON [Suspect]
     Indication: HIV INFECTION
     Route: 065
     Dates: start: 20030615

REACTIONS (1)
  - HEPATITIS [None]
